FAERS Safety Report 7795846-6 (Version None)
Quarter: 2011Q4

REPORT INFORMATION
  Report Type: 
  Country: None (occurrence: None)
  Receive Date: 20111004
  Receipt Date: 20110927
  Transmission Date: 20120403
  Serious: Yes (Other)
  Sender: FDA-Public Use
  Company Number: PHHY2011FR86172

PATIENT
  Age: 95 Year
  Sex: Female

DRUGS (2)
  1. METHOTREXATE [Suspect]
     Indication: PEMPHIGOID
     Dosage: 10 MG, QW
     Route: 048
  2. CLOBETASOL PROPIONATE [Concomitant]
     Indication: PEMPHIGOID

REACTIONS (5)
  - FAILURE TO THRIVE [None]
  - DECREASED APPETITE [None]
  - SLEEP INERTIA [None]
  - ASTHENIA [None]
  - SLEEP DISORDER [None]
